FAERS Safety Report 6547213-0 (Version None)
Quarter: 2010Q1

REPORT INFORMATION
  Report Type: 
  Country: None (occurrence: None)
  Receive Date: 20100122
  Receipt Date: 20100111
  Transmission Date: 20100710
  Serious: Yes (Other)
  Sender: FDA-Public Use
  Company Number: CZ-JNJFOC-20100104094

PATIENT
  Sex: Male

DRUGS (6)
  1. REMICADE [Suspect]
     Indication: CROHN'S DISEASE
     Route: 042
     Dates: start: 20080404, end: 20091208
  2. REMICADE [Suspect]
     Route: 042
     Dates: start: 20080404, end: 20091208
  3. REMICADE [Suspect]
     Route: 042
     Dates: start: 20080404, end: 20091208
  4. REMICADE [Suspect]
     Route: 042
     Dates: start: 20080404, end: 20091208
  5. DUSPATALIN [Concomitant]
  6. IMURAN [Concomitant]

REACTIONS (2)
  - CYANOSIS [None]
  - INFUSION RELATED REACTION [None]
